FAERS Safety Report 23114920 (Version 3)
Quarter: 2023Q4

REPORT INFORMATION
  Report Type: Spontaneous
  Country: US (occurrence: US)
  Receive Date: 20231027
  Receipt Date: 20231201
  Transmission Date: 20240110
  Serious: Yes (Hospitalization)
  Sender: FDA-Public Use
  Company Number: US-BAYER-2023A151007

PATIENT
  Age: 55 Year
  Sex: Male

DRUGS (1)
  1. JIVI [Suspect]
     Active Substance: DAMOCTOCOG ALFA PEGOL
     Dosage: 5000 DF

REACTIONS (3)
  - Femur fracture [None]
  - Hip fracture [None]
  - Product dose omission issue [None]

NARRATIVE: CASE EVENT DATE: 20231011
